FAERS Safety Report 13900268 (Version 1)
Quarter: 2017Q3

REPORT INFORMATION
  Report Type: Report from Study
  Country: US (occurrence: US)
  Receive Date: 20170824
  Receipt Date: 20170824
  Transmission Date: 20171127
  Serious: Yes (Other)
  Sender: FDA-Public Use
  Company Number: US-SAOL THERAPEUTICS-2017SAO01278

PATIENT
  Age: 47 Year
  Sex: Male

DRUGS (8)
  1. COMPOUNDED BACLOFEN [Suspect]
     Active Substance: BACLOFEN
     Dosage: 52.9 ?G, \DAY
     Route: 037
     Dates: start: 20160128, end: 20160301
  2. COMPOUNDED SUFENTANIL [Suspect]
     Active Substance: SUFENTANIL
     Dosage: 185.2 ?G, \DAY
     Route: 037
     Dates: start: 20160120, end: 20160128
  3. NORMAL SALINE [Suspect]
     Active Substance: SODIUM CHLORIDE
     Route: 037
  4. CLONIDINE. [Suspect]
     Active Substance: CLONIDINE
     Dosage: 315.96 ?G, \DAY
     Route: 037
     Dates: start: 20160120, end: 20160128
  5. CLONIDINE. [Suspect]
     Active Substance: CLONIDINE
     Dosage: 317.41 ?G, \DAY
     Route: 037
     Dates: start: 20160128, end: 2016
  6. COMPOUNDED SUFENTANIL [Suspect]
     Active Substance: SUFENTANIL
     Dosage: 185.16 ?G, \DAY
     Dates: start: 20160128, end: 2016
  7. COMPOUNDED SUFENTANIL [Suspect]
     Active Substance: SUFENTANIL
     Dosage: UNK
  8. COMPOUNDED BACLOFEN [Suspect]
     Active Substance: BACLOFEN
     Dosage: UNK
     Route: 037
     Dates: start: 20161213

REACTIONS (12)
  - Feeling jittery [Recovered/Resolved]
  - Cervical spinal stenosis [Unknown]
  - Fatigue [Recovered/Resolved]
  - Joint stiffness [Recovered/Resolved]
  - Asthenia [Recovered/Resolved]
  - Hypoaesthesia [None]
  - Musculoskeletal stiffness [Recovered/Resolved]
  - Unevaluable event [Unknown]
  - Paraesthesia [Recovered/Resolved]
  - Spinal osteoarthritis [Unknown]
  - Pain [Recovered/Resolved]
  - Burning sensation [None]

NARRATIVE: CASE EVENT DATE: 20160218
